FAERS Safety Report 10470513 (Version 1)
Quarter: 2014Q3

REPORT INFORMATION
  Report Type: Spontaneous
  Country: US (occurrence: None)
  Receive Date: 20140905
  Receipt Date: 20140905
  Transmission Date: 20150326
  Serious: Yes (Hospitalization)
  Sender: FDA-Public Use
  Company Number: A-NJ2014-98379

PATIENT
  Age: 42 Year
  Sex: Female

DRUGS (2)
  1. REVATIO (SILDENAFIL CITRATE) [Concomitant]
  2. VELETRI [Suspect]
     Active Substance: EPOPROSTENOL
     Indication: PULMONARY ARTERIAL HYPERTENSION
     Dosage: 83.4 NG/KG, PER MINUTE, INTRAVENOUS
     Dates: start: 20111011

REACTIONS (3)
  - Catheter site pain [None]
  - Catheter site infection [None]
  - Catheter management [None]

NARRATIVE: CASE EVENT DATE: 20140426
